FAERS Safety Report 7163931-8 (Version None)
Quarter: 2010Q4

REPORT INFORMATION
  Report Type: 
  Country: None (occurrence: None)
  Receive Date: 20101210
  Receipt Date: 20101210
  Transmission Date: 20110411
  Serious: No
  Sender: FDA-Public Use
  Company Number: None

PATIENT
  Sex: Male
  Weight: 102.8 kg

DRUGS (3)
  1. ERBITUX [Suspect]
     Dosage: 2070 MG
     Dates: end: 20101129
  2. TAXOL [Suspect]
     Dosage: 920 MG
     Dates: end: 20101122
  3. CARBOPLATIN [Suspect]
     Dosage: 1440 MG
     Dates: end: 20101122

REACTIONS (1)
  - DERMATITIS ACNEIFORM [None]
